FAERS Safety Report 19977501 (Version 1)
Quarter: 2021Q4

REPORT INFORMATION
  Report Type: Spontaneous
  Country: US (occurrence: US)
  Receive Date: 20211020
  Receipt Date: 20211020
  Transmission Date: 20220303
  Serious: No
  Sender: FDA-Public Use
  Company Number: 2021A749941

PATIENT
  Sex: Female

DRUGS (1)
  1. SYMBICORT [Suspect]
     Active Substance: BUDESONIDE\FORMOTEROL FUMARATE DIHYDRATE
     Dosage: 2 PUFFS ONCE A DAY
     Route: 055

REACTIONS (4)
  - Sleep apnoea syndrome [Unknown]
  - Asthma [Unknown]
  - Chronic obstructive pulmonary disease [Unknown]
  - Intentional device misuse [Unknown]
